FAERS Safety Report 7103885-3 (Version None)
Quarter: 2010Q4

REPORT INFORMATION
  Report Type: 
  Country: None (occurrence: None)
  Receive Date: 20101115
  Receipt Date: 20101105
  Transmission Date: 20110411
  Serious: Yes (Death, Hospitalization)
  Sender: FDA-Public Use
  Company Number: PHHY2010MX27129

PATIENT
  Sex: Male

DRUGS (1)
  1. ZOMETA [Suspect]
     Dosage: 4MG/5ML  PER MONTH
     Route: 042
     Dates: end: 20100401

REACTIONS (4)
  - BILE DUCT OBSTRUCTION [None]
  - BILIARY DRAINAGE [None]
  - GALLBLADDER OBSTRUCTION [None]
  - PANCREATIC NEOPLASM [None]
